FAERS Safety Report 4860899-1 (Version None)
Quarter: 2005Q4

REPORT INFORMATION
  Report Type: 
  Country: None (occurrence: None)
  Receive Date: 20051220
  Receipt Date: 20051208
  Transmission Date: 20060501
  Serious: Yes (Other)
  Sender: FDA-Public Use
  Company Number: PHMT2005CA00777

PATIENT
  Sex: Female

DRUGS (1)
  1. GENTEAL (NVO) [Suspect]
     Indication: LACRIMAL DISORDER

REACTIONS (1)
  - EYE INFECTION [None]
